FAERS Safety Report 15966971 (Version 1)
Quarter: 2019Q1

REPORT INFORMATION
  Report Type: Spontaneous
  Country: US (occurrence: US)
  Receive Date: 20190215
  Receipt Date: 20190215
  Transmission Date: 20190418
  Serious: Yes (Other)
  Sender: FDA-Public Use
  Company Number: US-ALEXION PHARMACEUTICALS INC-A201902137

PATIENT
  Sex: Female

DRUGS (1)
  1. SOLIRIS [Suspect]
     Active Substance: ECULIZUMAB
     Indication: ATYPICAL HAEMOLYTIC URAEMIC SYNDROME
     Dosage: UNK
     Route: 065

REACTIONS (23)
  - Red blood cell count decreased [Unknown]
  - Lymphocyte count decreased [Unknown]
  - Carbon dioxide decreased [Unknown]
  - Haematocrit decreased [Unknown]
  - Heart rate increased [Unknown]
  - Red cell distribution width increased [Unknown]
  - Urine leukocyte esterase positive [Unknown]
  - White blood cells urine positive [Unknown]
  - Blood urea increased [Unknown]
  - Reticulocyte percentage decreased [Unknown]
  - Neutrophil count increased [Unknown]
  - Blood glucose increased [Unknown]
  - Nephrotic syndrome [Unknown]
  - Urinary sediment present [Unknown]
  - Haemoglobin decreased [Unknown]
  - Proteinuria [Unknown]
  - Schistocytosis [Unknown]
  - Neutrophil percentage increased [Unknown]
  - Monocyte percentage decreased [Unknown]
  - Basophil count decreased [Unknown]
  - Eosinophil percentage decreased [Unknown]
  - Bacterial test positive [Unknown]
  - Blood lactate dehydrogenase increased [Unknown]

NARRATIVE: CASE EVENT DATE: 20190102
